FAERS Safety Report 18643228 (Version 1)
Quarter: 2020Q4

REPORT INFORMATION
  Report Type: Spontaneous
  Country: US (occurrence: US)
  Receive Date: 20201221
  Receipt Date: 20201221
  Transmission Date: 20210114
  Serious: Yes (Hospitalization, Other)
  Sender: FDA-Public Use
  Company Number: None

PATIENT
  Age: 88 Year
  Sex: Male
  Weight: 51.6 kg

DRUGS (17)
  1. DIGOXIN 125 MCG PO [Concomitant]
     Dates: start: 20201217
  2. LEVOFLOXACIN 750 MG IV [Concomitant]
     Dates: start: 20201215, end: 20201217
  3. VITAMIN D 2000 UNITS BID [Concomitant]
     Dates: start: 20201215, end: 20201217
  4. BAMLANIVIMAB. [Suspect]
     Active Substance: BAMLANIVIMAB
     Indication: COVID-19
     Dosage: ?          OTHER FREQUENCY:ONCE;?
     Route: 042
     Dates: start: 20201212, end: 20201212
  5. ASPRIN 81 MG [Concomitant]
     Dates: start: 20201215, end: 20201217
  6. CETIRIZINE [Concomitant]
     Active Substance: CETIRIZINE HYDROCHLORIDE
     Dates: start: 20201215, end: 20201217
  7. DIGOXIN 0.25MG IV [Concomitant]
     Dates: start: 20201218, end: 20201219
  8. DILTIAZEM DRIP [Concomitant]
     Dates: start: 20201215, end: 20201215
  9. METOPROLOL. [Concomitant]
     Active Substance: METOPROLOL
     Dates: start: 20201215, end: 20201219
  10. DEXAMETHASONE 6 MG [Concomitant]
     Dates: start: 20201215, end: 20201217
  11. LORAZEPAM. [Concomitant]
     Active Substance: LORAZEPAM
     Dates: start: 20201215
  12. LEVOTHYROXINE50 MCG [Concomitant]
     Dates: start: 20201215, end: 20201217
  13. AMIODARONE DRIP [Concomitant]
     Dates: start: 20201216, end: 20201216
  14. DIGOXIN 0.25 MG IV [Concomitant]
     Dates: start: 20201216, end: 20201216
  15. HALOPERIDOL. [Concomitant]
     Active Substance: HALOPERIDOL
     Dates: start: 20201217, end: 20201220
  16. MONTELUKAST 10 MG [Concomitant]
     Active Substance: MONTELUKAST SODIUM
     Dates: start: 20201215, end: 20201217
  17. ELIQUIS [Concomitant]
     Active Substance: APIXABAN
     Dates: start: 20201215, end: 20201217

REACTIONS (3)
  - Intentional product use issue [None]
  - Encephalopathy [None]
  - Condition aggravated [None]

NARRATIVE: CASE EVENT DATE: 20201215
